FAERS Safety Report 5876801-X (Version None)
Quarter: 2008Q3

REPORT INFORMATION
  Report Type: 
  Country: None (occurrence: None)
  Receive Date: 20080908
  Receipt Date: 20080908
  Transmission Date: 20090109
  Serious: Yes (Other)
  Sender: FDA-Public Use
  Company Number: None

PATIENT
  Age: 30 Year
  Sex: Female
  Weight: 98.4306 kg

DRUGS (1)
  1. BUDEPRION XL 150 MG TEVA PHARM. [Suspect]
     Indication: DEPRESSION
     Dosage: 150 MG 1X DAILY PO
     Route: 048
     Dates: start: 20080805, end: 20080909

REACTIONS (2)
  - DRUG INEFFECTIVE [None]
  - PRURITUS [None]
